FAERS Safety Report 10201648 (Version 1)
Quarter: 2014Q2

REPORT INFORMATION
  Report Type: Spontaneous
  Country: DE (occurrence: DE)
  Receive Date: 20140528
  Receipt Date: 20140528
  Transmission Date: 20141212
  Serious: Yes (Other)
  Sender: FDA-Public Use
  Company Number: DE-ENDO PHARMACEUTICALS INC.-AVEE20140057

PATIENT
  Age: 75 Year
  Sex: Male
  Weight: 82 kg

DRUGS (7)
  1. AVEED [Suspect]
     Indication: ANDROGEN DEFICIENCY
     Route: 030
     Dates: start: 201212
  2. DELIX [Concomitant]
     Indication: HYPERTENSION
     Dosage: UNK
     Route: 065
  3. MODIP [Concomitant]
     Indication: HYPERTENSION
     Dosage: UNK
     Route: 065
  4. BELOC-ZOK [Concomitant]
     Indication: HYPERTENSION
     Dosage: UNK
     Route: 065
  5. ASPIRIN PROTECT [Concomitant]
     Indication: PRODUCT USED FOR UNKNOWN INDICATION
     Dosage: UNK
     Route: 065
  6. SORTIS [Concomitant]
     Indication: LIPIDS INCREASED
     Dosage: UNK
     Route: 065
  7. SOMATROPIN [Concomitant]
     Indication: PITUITARY TUMOUR BENIGN
     Dosage: UNK
     Route: 065

REACTIONS (4)
  - Abasia [Recovering/Resolving]
  - Pain in extremity [Recovering/Resolving]
  - Injection site pain [Recovering/Resolving]
  - Injection site haematoma [Recovering/Resolving]
